FAERS Safety Report 12142862 (Version 5)
Quarter: 2016Q2

REPORT INFORMATION
  Report Type: Not Available
  Country: SE (occurrence: SE)
  Receive Date: 20160303
  Receipt Date: 20160601
  Transmission Date: 20160815
  Serious: Yes (Death)
  Sender: FDA-Public Use
  Company Number: SE-MUNDIPHARMA DS AND PHARMACOVIGILANCE-GBR-2016-0034325

PATIENT
  Age: 48 Hour
  Sex: Male

DRUGS (8)
  1. ALVEDON [Concomitant]
     Active Substance: ACETAMINOPHEN
     Dosage: UNK
     Route: 064
     Dates: start: 20121130, end: 20151213
  2. SPASMOFEN [Concomitant]
     Active Substance: CODEINE HYDROCHLORIDE\METHSCOPOLAMINE NITRATE\MORPHINE HYDROCHLORIDE\ NOSCAPINE HYDROCHLORIDE\PAPAVERINE HYDROCHLORIDE
     Route: 064
  3. TARGINIQ ER [Suspect]
     Active Substance: NALOXONE HYDROCHLORIDE\OXYCODONE HYDROCHLORIDE
     Indication: NEPHROLITHIASIS
     Dosage: 2 DF, BID
     Route: 064
     Dates: start: 201512, end: 201512
  4. TARGINIQ ER [Suspect]
     Active Substance: NALOXONE HYDROCHLORIDE\OXYCODONE HYDROCHLORIDE
     Indication: HYDRONEPHROSIS
     Dosage: 1 DF, DAILY
     Route: 064
     Dates: start: 201512, end: 201512
  5. OXYTOCIN. [Concomitant]
     Active Substance: OXYTOCIN
     Indication: INDUCED LABOUR
     Route: 064
  6. ALFUZOSIN [Concomitant]
     Active Substance: ALFUZOSIN
  7. NAPROXEN. [Concomitant]
     Active Substance: NAPROXEN
     Dosage: UNK
     Route: 064
     Dates: start: 20121212, end: 20151213
  8. OXYNORM [Concomitant]
     Active Substance: OXYCODONE HYDROCHLORIDE
     Route: 064

REACTIONS (6)
  - Respiratory arrest [Fatal]
  - Foetal exposure during pregnancy [Fatal]
  - Hypoxic-ischaemic encephalopathy [Fatal]
  - Sudden infant death syndrome [Fatal]
  - Electroencephalogram abnormal [Fatal]
  - Respiratory disorder neonatal [Fatal]

NARRATIVE: CASE EVENT DATE: 201512
